FAERS Safety Report 5308800-0 (Version None)
Quarter: 2007Q2

REPORT INFORMATION
  Report Type: 
  Country: None (occurrence: None)
  Receive Date: 20070426
  Receipt Date: 20070416
  Transmission Date: 20071010
  Serious: No
  Sender: FDA-Public Use
  Company Number: JP-BAXTER-2007BH003677

PATIENT
  Age: 60 Year
  Sex: Male
  Weight: 60 kg

DRUGS (1)
  1. EXTRANEAL [Suspect]
     Indication: RENAL FAILURE CHRONIC
     Route: 033
     Dates: start: 20070307, end: 20070412

REACTIONS (3)
  - ERYTHEMA [None]
  - HOT FLUSH [None]
  - PRURITUS [None]
